FAERS Safety Report 24741331 (Version 1)
Quarter: 2024Q4

REPORT INFORMATION
  Report Type: Other
  Country: FR (occurrence: FR)
  Receive Date: 20241217
  Receipt Date: 20241217
  Transmission Date: 20250115
  Serious: Yes (Hospitalization)
  Sender: ZYDUS PHARM
  Company Number: None

PATIENT

DRUGS (2)
  1. ACETAMINOPHEN [Suspect]
     Active Substance: ACETAMINOPHEN
     Indication: Intentional overdose
     Dosage: 30 GRAM ONE TOTAL
     Route: 048
     Dates: start: 20241009, end: 20241009
  2. KETOPROFEN [Concomitant]
     Active Substance: KETOPROFEN
     Indication: Intentional overdose
     Dosage: 11 GRAM ONE TOTAL
     Route: 048
     Dates: start: 20241009, end: 20241009

REACTIONS (2)
  - Prothrombin time shortened [Recovered/Resolved]
  - Poisoning deliberate [Recovered/Resolved]

NARRATIVE: CASE EVENT DATE: 20241009
